FAERS Safety Report 9332452 (Version 2)
Quarter: 2013Q4

REPORT INFORMATION
  Report Type: Spontaneous
  Country: IT (occurrence: IT)
  Receive Date: 20130606
  Receipt Date: 20131212
  Transmission Date: 20140711
  Serious: Yes (Other)
  Sender: FDA-Public Use
  Company Number: IT-RANBAXY-2013R1-69683

PATIENT
  Age: 46 Year
  Sex: Female

DRUGS (2)
  1. ACICLOVIR [Suspect]
     Indication: PRODUCT USED FOR UNKNOWN INDICATION
     Dosage: 800MG, DAILY
     Route: 048
     Dates: start: 20130420, end: 20130422
  2. VISTABEX [Concomitant]
     Indication: PRODUCT USED FOR UNKNOWN INDICATION
     Dosage: 50 DOSAGE UNITS, COMPLETE
     Route: 030
     Dates: start: 20130422, end: 20130422

REACTIONS (2)
  - Paraesthesia oral [Recovered/Resolved]
  - Dysgeusia [Recovered/Resolved]
